FAERS Safety Report 10419879 (Version 1)
Quarter: 2014Q2

REPORT INFORMATION
  Report Type: Spontaneous
  Country: US (occurrence: None)
  Receive Date: 20140627
  Receipt Date: 20140627
  Transmission Date: 20141212
  Serious: Yes (Hospitalization)
  Sender: FDA-Public Use
  Company Number: CABO-14004193

PATIENT
  Age: 67 Year
  Sex: Male

DRUGS (7)
  1. COMETRIQ (CABOZANTINIB) CAPSULE [Suspect]
     Indication: HEPATIC CANCER
     Route: 048
     Dates: start: 20140408, end: 201404
  2. XIFAXAN (RIFAXIMIN) [Concomitant]
  3. PANTOPRAZOLE (PANTOPRAZOLE) [Concomitant]
  4. ATENOLOL (ATENOLOL) [Concomitant]
  5. HYDROCODONE (HYDROCODONE) [Concomitant]
  6. LACTULOSE (LACTULOSE) [Concomitant]
  7. VITAMIN D (COLECALCIFEROL) [Concomitant]

REACTIONS (5)
  - Somnolence [None]
  - Ammonia increased [None]
  - Feeling abnormal [None]
  - Fatigue [None]
  - Off label use [None]
